FAERS Safety Report 24389382 (Version 2)
Quarter: 2024Q4

REPORT INFORMATION
  Report Type: Spontaneous
  Country: ID (occurrence: ID)
  Receive Date: 20241003
  Receipt Date: 20241008
  Transmission Date: 20250114
  Serious: Yes (Death)
  Sender: ROCHE
  Company Number: ID-ROCHE-10000096116

PATIENT

DRUGS (2)
  1. ALECENSA [Suspect]
     Active Substance: ALECTINIB HYDROCHLORIDE
     Indication: Product used for unknown indication
     Route: 065
  2. BEVACIZUMAB [Suspect]
     Active Substance: BEVACIZUMAB
     Indication: Product used for unknown indication
     Route: 065

REACTIONS (2)
  - Death [Fatal]
  - Haemorrhage [Unknown]
